FAERS Safety Report 22179781 (Version 2)
Quarter: 2023Q2

REPORT INFORMATION
  Report Type: Spontaneous
  Country: US (occurrence: US)
  Receive Date: 20230406
  Receipt Date: 20230523
  Transmission Date: 20230721
  Serious: No
  Sender: FDA-Public Use
  Company Number: US-JNJFOC-20230378647

PATIENT
  Age: 70 Year
  Sex: Male

DRUGS (1)
  1. SPRAVATO [Suspect]
     Active Substance: ESKETAMINE
     Indication: Product used for unknown indication
     Route: 045
     Dates: start: 20230314

REACTIONS (2)
  - Device issue [Unknown]
  - Underdose [Unknown]

NARRATIVE: CASE EVENT DATE: 20230301
